FAERS Safety Report 8225552-5 (Version None)
Quarter: 2012Q1

REPORT INFORMATION
  Report Type: 
  Country: None (occurrence: None)
  Receive Date: 20120321
  Receipt Date: 20120313
  Transmission Date: 20120608
  Serious: Yes (Hospitalization, Other)
  Sender: FDA-Public Use
  Company Number: PHHY2012NO021853

PATIENT
  Age: 64 Year
  Sex: Female

DRUGS (4)
  1. OMEPRAZOLE [Suspect]
  2. SIMVASTATIN [Concomitant]
     Dosage: 20 MG, UNK
  3. LOSARTAN POTASSIUM AND HYDROCHLOROTHIAZIDE [Suspect]
     Indication: HYPERTENSION
     Route: 048
  4. ARTHROTEC [Concomitant]
     Dosage: 200 MG, BID

REACTIONS (4)
  - RENAL IMPAIRMENT [None]
  - KIDNEY SMALL [None]
  - ARTERIOSCLEROSIS [None]
  - TREMOR [None]
